FAERS Safety Report 5048922-5 (Version None)
Quarter: 2006Q3

REPORT INFORMATION
  Report Type: 
  Country: None (occurrence: None)
  Receive Date: 20060712
  Receipt Date: 20050819
  Transmission Date: 20061208
  Serious: No
  Sender: FDA-Public Use
  Company Number: US-GLAXOSMITHKLINE-A0570968A

PATIENT
  Age: 58 Year
  Sex: Male

DRUGS (12)
  1. IMITREX [Suspect]
     Indication: MIGRAINE
     Dosage: 100MG AS REQUIRED
     Route: 048
  2. TYLENOL (CAPLET) [Concomitant]
  3. ADVIL [Concomitant]
  4. ACIPHEX [Concomitant]
  5. RANITIDINE [Concomitant]
  6. VYTORIN [Concomitant]
  7. HYDROCODONE [Concomitant]
  8. MYLANTA [Concomitant]
  9. COQ10 [Concomitant]
  10. TYLENOL (CAPLET) [Concomitant]
  11. IMITREX [Concomitant]
     Route: 058
  12. CAFFEINE [Concomitant]

REACTIONS (1)
  - DRUG INEFFECTIVE [None]
